FAERS Safety Report 21407611 (Version 1)
Quarter: 2022Q4

REPORT INFORMATION
  Report Type: Spontaneous
  Country: FR (occurrence: FR)
  Receive Date: 20221004
  Receipt Date: 20221004
  Transmission Date: 20230113
  Serious: Yes (Other)
  Sender: FDA-Public Use
  Company Number: FR-ViiV Healthcare Limited-62715

PATIENT

DRUGS (1)
  1. DOVATO [Suspect]
     Active Substance: DOLUTEGRAVIR SODIUM\LAMIVUDINE
     Indication: Product used for unknown indication
     Dosage: UNK
     Dates: start: 20220823

REACTIONS (6)
  - Neutropenia [Unknown]
  - Leukopenia [Unknown]
  - Nervous system disorder [Unknown]
  - Sleep disorder [Unknown]
  - Nightmare [Unknown]
  - Insomnia [Unknown]

NARRATIVE: CASE EVENT DATE: 20220920
